FAERS Safety Report 9624696 (Version 1)
Quarter: 2013Q4

REPORT INFORMATION
  Report Type: Spontaneous
  Country: AU (occurrence: AU)
  Receive Date: 20131015
  Receipt Date: 20131015
  Transmission Date: 20140711
  Serious: Yes (Other)
  Sender: FDA-Public Use
  Company Number: AU-ABBVIE-13P-008-1158042-00

PATIENT
  Age: 83 Year
  Sex: Male

DRUGS (7)
  1. EPILIM [Suspect]
     Indication: PRODUCT USED FOR UNKNOWN INDICATION
  2. AVAPRO [Concomitant]
     Indication: PRODUCT USED FOR UNKNOWN INDICATION
  3. IMDUR [Concomitant]
     Indication: PRODUCT USED FOR UNKNOWN INDICATION
  4. ISCOVER [Concomitant]
     Indication: PRODUCT USED FOR UNKNOWN INDICATION
  5. MINAX [Concomitant]
     Indication: PRODUCT USED FOR UNKNOWN INDICATION
  6. PARIET [Concomitant]
     Indication: PRODUCT USED FOR UNKNOWN INDICATION
  7. UREMIDE [Concomitant]
     Indication: PRODUCT USED FOR UNKNOWN INDICATION

REACTIONS (6)
  - Renal failure [Unknown]
  - Mouth ulceration [Unknown]
  - Rash erythematous [Unknown]
  - Anaemia [Unknown]
  - Haematuria [Unknown]
  - Lip swelling [Unknown]
